FAERS Safety Report 20648171 (Version 10)
Quarter: 2022Q3

REPORT INFORMATION
  Report Type: Report from Study
  Country: US (occurrence: US)
  Receive Date: 20220329
  Receipt Date: 20220808
  Transmission Date: 20221027
  Serious: Yes (Other)
  Sender: FDA-Public Use
  Company Number: US-NOVARTISTESTPH-NVSC2022US070408

PATIENT
  Sex: Female

DRUGS (2)
  1. ENTRESTO [Suspect]
     Active Substance: SACUBITRIL\VALSARTAN
     Indication: Product used for unknown indication
     Dosage: UNK UNK, BID
     Route: 048
  2. ENTRESTO [Suspect]
     Active Substance: SACUBITRIL\VALSARTAN
     Route: 048

REACTIONS (10)
  - Neuropathy peripheral [Unknown]
  - Pain in extremity [Unknown]
  - Vision blurred [Unknown]
  - Joint swelling [Unknown]
  - Panic attack [Unknown]
  - Insomnia [Unknown]
  - Decreased appetite [Unknown]
  - Fluid retention [Unknown]
  - COVID-19 [Unknown]
  - Weight fluctuation [Unknown]
